FAERS Safety Report 5530347-7 (Version None)
Quarter: 2007Q4

REPORT INFORMATION
  Report Type: 
  Country: None (occurrence: None)
  Receive Date: 20071127
  Receipt Date: 20071127
  Transmission Date: 20080405
  Serious: Yes (Death)
  Sender: FDA-Public Use
  Company Number: None

PATIENT
  Age: 57 Year
  Sex: Male
  Weight: 100 kg

DRUGS (10)
  1. TEMOZOLOMIDE [Suspect]
     Indication: GLIOSARCOMA
     Dosage: 80MG/M2 PO DAILY
     Route: 048
     Dates: start: 20070802, end: 20070827
  2. BEVACIZUMAB (GENENTECH) [Suspect]
     Indication: GLIOSARCOMA
     Dosage: 10MG/KG IV Q2 WEEKS X2
     Route: 042
     Dates: start: 20070802
  3. BEVACIZUMAB (GENENTECH) [Suspect]
     Indication: GLIOSARCOMA
     Dosage: 10MG/KG IV Q2 WEEKS X2
     Route: 042
     Dates: start: 20070815
  4. LOTREL [Concomitant]
  5. LEXAPRO [Concomitant]
  6. DECADRON [Concomitant]
  7. MINOCYCLINE HCL [Concomitant]
  8. ZOCOR [Concomitant]
  9. IMODIUM [Concomitant]
  10. ZOMETA [Concomitant]

REACTIONS (3)
  - DISEASE PROGRESSION [None]
  - DYSPNOEA [None]
  - LETHARGY [None]
